FAERS Safety Report 12711545 (Version 1)
Quarter: 2016Q3

REPORT INFORMATION
  Report Type: Report from Study
  Country: US (occurrence: US)
  Receive Date: 20160902
  Receipt Date: 20160902
  Transmission Date: 20161109
  Serious: Yes (Other)
  Sender: FDA-Public Use
  Company Number: US-ALEXION PHARMACEUTICALS INC-A201606460

PATIENT
  Sex: Female

DRUGS (1)
  1. SOLIRIS [Suspect]
     Active Substance: ECULIZUMAB
     Indication: PAROXYSMAL NOCTURNAL HAEMOGLOBINURIA
     Dosage: 900 MG, Q2W
     Route: 042
     Dates: end: 20160816

REACTIONS (6)
  - Anaemia [Unknown]
  - Haptoglobin decreased [Not Recovered/Not Resolved]
  - Marrow hyperplasia [Unknown]
  - Bone marrow failure [Unknown]
  - Haemolysis [Not Recovered/Not Resolved]
  - Free haemoglobin present [Not Recovered/Not Resolved]
